FAERS Safety Report 5101179-9 (Version None)
Quarter: 2006Q3

REPORT INFORMATION
  Report Type: 
  Country: None (occurrence: None)
  Receive Date: 20060911
  Receipt Date: 20060829
  Transmission Date: 20061208
  Serious: Yes (Death)
  Sender: FDA-Public Use
  Company Number: FR-BAYER-200610827BFR

PATIENT
  Age: 78 Year
  Sex: Male

DRUGS (6)
  1. SORAFENIB OR PLACEBO [Suspect]
     Indication: HEPATIC NEOPLASM MALIGNANT
     Route: 048
     Dates: end: 20060828
  2. CORGARD [Concomitant]
     Indication: HAEMORRHAGE PROPHYLAXIS
     Route: 048
     Dates: end: 20060828
  3. URSOLVAN [Concomitant]
     Indication: CALCULUS BLADDER
     Route: 048
     Dates: end: 20060828
  4. LASILIX [Concomitant]
     Indication: OEDEMA
     Route: 048
     Dates: start: 20060327, end: 20060828
  5. ALDACTONE [Concomitant]
     Indication: OEDEMA
     Route: 048
     Dates: start: 20060509, end: 20060828
  6. IXPRIM [Concomitant]
     Indication: PAIN
     Route: 048
     Dates: start: 20060509, end: 20060828

REACTIONS (1)
  - PERITONEAL HAEMORRHAGE [None]
